FAERS Safety Report 14502445 (Version 1)
Quarter: 2018Q1

REPORT INFORMATION
  Report Type: Report from Study
  Country: CN (occurrence: CN)
  Receive Date: 20180208
  Receipt Date: 20180208
  Transmission Date: 20180509
  Serious: Yes (Other)
  Sender: FDA-Public Use
  Company Number: CN-ROCHE-1968228

PATIENT
  Sex: Male
  Weight: 95 kg

DRUGS (1)
  1. AVASTIN [Suspect]
     Active Substance: BEVACIZUMAB
     Indication: COLORECTAL CANCER
     Route: 041
     Dates: start: 20170216

REACTIONS (6)
  - Decreased appetite [Recovered/Resolved]
  - Pyrexia [Unknown]
  - Decreased appetite [Unknown]
  - Intestinal obstruction [Recovered/Resolved]
  - Cachexia [Unknown]
  - Malaise [Unknown]
